FAERS Safety Report 5581660-9 (Version None)
Quarter: 2008Q1

REPORT INFORMATION
  Report Type: 
  Country: None (occurrence: None)
  Receive Date: 20080104
  Receipt Date: 20071227
  Transmission Date: 20080703
  Serious: Yes (Hospitalization)
  Sender: FDA-Public Use
  Company Number: US-TEVA-155000USA

PATIENT
  Sex: Male

DRUGS (5)
  1. KETOCONAZOLE 200MG TABLETS [Suspect]
     Indication: NEOPLASM MALIGNANT
     Route: 048
     Dates: start: 20070103
  2. VINFLUNINE [Suspect]
     Indication: NEOPLASM MALIGNANT
     Route: 042
     Dates: start: 20070104
  3. OXYCODONE HCL [Concomitant]
     Dates: start: 20060601
  4. ESOMEPRAZOLE MAGNESIUM [Concomitant]
     Dates: start: 20061201
  5. SENNA ALEXANDRINA [Concomitant]
     Dates: start: 20060601

REACTIONS (4)
  - AGRANULOCYTOSIS [None]
  - ANAEMIA [None]
  - OEDEMA PERIPHERAL [None]
  - SKIN REACTION [None]
